FAERS Safety Report 20207640 (Version 1)
Quarter: 2021Q4

REPORT INFORMATION
  Report Type: Report from Study
  Country: GB (occurrence: GB)
  Receive Date: 20211220
  Receipt Date: 20211220
  Transmission Date: 20220303
  Serious: Yes (Death, Hospitalization)
  Sender: FDA-Public Use
  Company Number: GB-AKARI THERAPEUTICS PLC-GB-AKARI-21-000001

PATIENT
  Age: 11 Year
  Sex: Male
  Weight: 53 kg

DRUGS (4)
  1. MYCOPHENOLATE MOFETIL [Suspect]
     Active Substance: MYCOPHENOLATE MOFETIL
     Indication: Graft versus host disease
     Dosage: UNK
  2. MYCOPHENOLATE MOFETIL [Suspect]
     Active Substance: MYCOPHENOLATE MOFETIL
     Indication: Polyserositis
  3. PREDNISOLONE [Suspect]
     Active Substance: PREDNISOLONE
     Indication: Graft versus host disease
     Dosage: 400 MICROGRAM/KILOGRAM, QD
     Dates: start: 20211001
  4. PENTAMIDINE [Concomitant]
     Active Substance: PENTAMIDINE
     Indication: Prophylaxis
     Dosage: UNK

REACTIONS (3)
  - Respiratory failure [Fatal]
  - Respiratory syncytial virus infection [Fatal]
  - Infection [Unknown]

NARRATIVE: CASE EVENT DATE: 20211019
